FAERS Safety Report 9282766 (Version 1)
Quarter: 2013Q2

REPORT INFORMATION
  Report Type: Spontaneous
  Country: US (occurrence: US)
  Receive Date: 20130510
  Receipt Date: 20130510
  Transmission Date: 20140414
  Serious: Yes (Hospitalization)
  Sender: FDA-Public Use
  Company Number: US-BRISTOL-MYERS SQUIBB COMPANY-18852988

PATIENT
  Sex: Male

DRUGS (1)
  1. BYDUREON [Suspect]

REACTIONS (2)
  - Mouth haemorrhage [Recovering/Resolving]
  - Goitre [Recovering/Resolving]
